FAERS Safety Report 25346315 (Version 1)
Quarter: 2025Q2

REPORT INFORMATION
  Report Type: Spontaneous
  Country: US (occurrence: US)
  Receive Date: 20250522
  Receipt Date: 20250522
  Transmission Date: 20250717
  Serious: Yes (Other)
  Sender: MERCK SHARP & DOHME LLC
  Company Number: US-009507513-2287200

PATIENT
  Sex: Female

DRUGS (9)
  1. KEYTRUDA [Suspect]
     Active Substance: PEMBROLIZUMAB
     Indication: Endometrial cancer
     Dosage: UNKNOWN EVERY THREE WEEKS
     Route: 042
     Dates: start: 20241217
  2. LENVIMA [Suspect]
     Active Substance: LENVATINIB
     Indication: Endometrial cancer
     Route: 065
     Dates: start: 20250307
  3. LENVIMA [Suspect]
     Active Substance: LENVATINIB
     Indication: Endometrial cancer
     Route: 065
  4. LENVIMA [Suspect]
     Active Substance: LENVATINIB
     Indication: Endometrial cancer
     Route: 065
  5. PACLITAXEL [Suspect]
     Active Substance: PACLITAXEL
     Indication: Endometrial cancer
     Route: 065
     Dates: start: 20241217
  6. CARBOPLATIN [Suspect]
     Active Substance: CARBOPLATIN
     Indication: Endometrial cancer
     Route: 065
     Dates: start: 20241217
  7. SERTRALINE [Concomitant]
     Active Substance: SERTRALINE HYDROCHLORIDE
  8. BENADRYL [Concomitant]
     Active Substance: DIPHENHYDRAMINE HYDROCHLORIDE
  9. ADVIL [Concomitant]
     Active Substance: IBUPROFEN

REACTIONS (12)
  - Endometrial cancer recurrent [Unknown]
  - Malignant neoplasm progression [Unknown]
  - Adverse event [Unknown]
  - Blood pressure abnormal [Unknown]
  - Pulse abnormal [Unknown]
  - Ageusia [Unknown]
  - Decreased appetite [Unknown]
  - Abdominal discomfort [Unknown]
  - Nausea [Unknown]
  - Abdominal discomfort [Unknown]
  - Drug intolerance [Unknown]
  - Product use issue [Unknown]

NARRATIVE: CASE EVENT DATE: 20250101
